FAERS Safety Report 8954672 (Version 2)
Quarter: 2013Q1

REPORT INFORMATION
  Report Type: Spontaneous
  Country: DE (occurrence: DE)
  Receive Date: 20121210
  Receipt Date: 20130227
  Transmission Date: 20140127
  Serious: Yes (Other)
  Sender: FDA-Public Use
  Company Number: PHHY2012DE112933

PATIENT
  Age: 54 Year
  Sex: Female

DRUGS (2)
  1. FEMARA [Suspect]
     Dosage: 2.5 MG, UNK
     Route: 048
  2. LETROBLOCK [Suspect]

REACTIONS (2)
  - Papilloedema [Unknown]
  - Vision blurred [Unknown]
